FAERS Safety Report 23300885 (Version 1)
Quarter: 2023Q4

REPORT INFORMATION
  Report Type: Report from Study
  Country: FR (occurrence: FR)
  Receive Date: 20231215
  Receipt Date: 20231215
  Transmission Date: 20240110
  Serious: Yes (Other)
  Sender: FDA-Public Use
  Company Number: FR-002147023-NVSC2023FR223631

PATIENT
  Sex: Female
  Weight: 81 kg

DRUGS (4)
  1. MEKINIST [Suspect]
     Active Substance: TRAMETINIB DIMETHYL SULFOXIDE
     Indication: Glioma
     Dosage: 2 MG, QD (FORMULATION: POWDER FOR ORAL SOLUTION)
     Route: 065
     Dates: start: 20221116
  2. MEKINIST [Suspect]
     Active Substance: TRAMETINIB DIMETHYL SULFOXIDE
     Indication: BRAF gene mutation
     Dosage: 1.5 MG, QD  (FORMULATION: POWDER FOR ORAL SOLUTION)
     Route: 065
  3. TAFINLAR [Suspect]
     Active Substance: DABRAFENIB MESYLATE
     Indication: Glioma
     Dosage: 150 MG, BID (FORMULATION: ORO DISPERSIBLE TABLETS)
     Route: 065
     Dates: start: 20221116
  4. TAFINLAR [Suspect]
     Active Substance: DABRAFENIB MESYLATE
     Indication: BRAF gene mutation

REACTIONS (4)
  - Cardiac dysfunction [Unknown]
  - Ejection fraction abnormal [Recovered/Resolved]
  - Viral infection [Unknown]
  - Obesity [Unknown]

NARRATIVE: CASE EVENT DATE: 20231206
